FAERS Safety Report 15436409 (Version 2)
Quarter: 2018Q4

REPORT INFORMATION
  Report Type: Spontaneous
  Country: US (occurrence: US)
  Receive Date: 20180927
  Receipt Date: 20181001
  Transmission Date: 20190204
  Serious: Yes (Hospitalization, Other)
  Sender: FDA-Public Use
  Company Number: US-PFIZER INC-2018277891

PATIENT
  Age: 77 Year
  Sex: Female
  Weight: 52.61 kg

DRUGS (5)
  1. VITAMIN C [ASCORBIC ACID] [Concomitant]
     Dosage: UNK
  2. PREMPHASE [Suspect]
     Active Substance: ESTROGENS, CONJUGATED\MEDROXYPROGESTERONE ACETATE
  3. VITAMIN D [COLECALCIFEROL] [Concomitant]
  4. FLAXSEED OIL [LINUM USITATISSIMUM SEED OIL] [Concomitant]
     Dosage: UNK
  5. PREMPRO [Suspect]
     Active Substance: ESTROGENS, CONJUGATED\MEDROXYPROGESTERONE ACETATE
     Indication: HOT FLUSH
     Dosage: 0.45 MG / 1.5 MG, DAILY
     Route: 048
     Dates: end: 201809

REACTIONS (5)
  - Back pain [Unknown]
  - Muscle strain [Unknown]
  - Pulmonary thrombosis [Unknown]
  - Thrombosis [Unknown]
  - Pain [Unknown]
